FAERS Safety Report 15853809 (Version 1)
Quarter: 2019Q1

REPORT INFORMATION
  Report Type: Report from Study
  Country: US (occurrence: US)
  Receive Date: 20190122
  Receipt Date: 20190122
  Transmission Date: 20190417
  Serious: Yes (Death, Other)
  Sender: FDA-Public Use
  Company Number: US-PFIZER INC-2019017375

PATIENT

DRUGS (1)
  1. MYLOTARG [Suspect]
     Active Substance: GEMTUZUMAB OZOGAMICIN
     Indication: ACUTE MYELOID LEUKAEMIA
     Dosage: UNK (INFUSION, MEDIAN DOSE OF GEMTUZUMAB OZOGAMICIN GIVEN TO THESE PATIENTS WAS 4 MG/M2)

REACTIONS (3)
  - Venoocclusive liver disease [Fatal]
  - Drug-induced liver injury [Fatal]
  - Hepatic function abnormal [Fatal]
